FAERS Safety Report 9661302 (Version 1)
Quarter: 2013Q4

REPORT INFORMATION
  Report Type: Spontaneous
  Country: IT (occurrence: IT)
  Receive Date: 20131031
  Receipt Date: 20131031
  Transmission Date: 20140711
  Serious: Yes (Death, Hospitalization)
  Sender: FDA-Public Use
  Company Number: PHHY2013IT119390

PATIENT
  Sex: Male

DRUGS (2)
  1. PROPOFOL [Suspect]
  2. TRAMADOL [Suspect]

REACTIONS (12)
  - Acute respiratory failure [Fatal]
  - Circulatory collapse [Fatal]
  - Cyanosis [Fatal]
  - Dyspnoea [Fatal]
  - Atrial fibrillation [Unknown]
  - Acidosis [Unknown]
  - Cardiomyopathy [Unknown]
  - Cardiac disorder [Unknown]
  - Pulmonary thrombosis [Unknown]
  - Hepatic congestion [Unknown]
  - Toxicity to various agents [Unknown]
  - Pulmonary oedema [Unknown]
